FAERS Safety Report 4375782-8 (Version None)
Quarter: 2004Q2

REPORT INFORMATION
  Report Type: 
  Country: None (occurrence: None)
  Receive Date: 20040609
  Receipt Date: 20040609
  Transmission Date: 20050107
  Serious: Yes (Hospitalization)
  Sender: FDA-Public Use
  Company Number: None

PATIENT
  Sex: Male

DRUGS (13)
  1. TRIZIVIR [Suspect]
     Indication: HIV INFECTION
     Dosage: 300 MG PO BID
     Route: 048
     Dates: end: 20040407
  2. DIFLUCAN [Concomitant]
  3. PAXIL [Concomitant]
  4. ZYPREXA [Concomitant]
  5. ZITHROMAX [Concomitant]
  6. ACYCLOVIR [Concomitant]
  7. BACTRIM DS [Concomitant]
  8. TRIAMCINOLONE [Concomitant]
  9. KALETRA [Concomitant]
  10. INVIRASE [Concomitant]
  11. MOTRIN [Concomitant]
  12. LOPERAMIDE HCL [Concomitant]
  13. VICODIN ES [Concomitant]

REACTIONS (6)
  - ANAEMIA [None]
  - CD4 LYMPHOCYTES INCREASED [None]
  - HEADACHE [None]
  - MOBILITY DECREASED [None]
  - PYREXIA [None]
  - VIRAL LOAD DECREASED [None]
